FAERS Safety Report 24675573 (Version 1)
Quarter: 2024Q4

REPORT INFORMATION
  Report Type: Report from Study
  Country: JP (occurrence: JP)
  Receive Date: 20241128
  Receipt Date: 20241128
  Transmission Date: 20250115
  Serious: Yes (Other)
  Sender: ROCHE
  Company Number: JP-ROCHE-10000138306

PATIENT

DRUGS (2)
  1. ATEZOLIZUMAB [Suspect]
     Active Substance: ATEZOLIZUMAB
     Indication: Hepatocellular carcinoma
     Route: 065
  2. BEVACIZUMAB [Suspect]
     Active Substance: BEVACIZUMAB
     Indication: Hepatocellular carcinoma
     Route: 065

REACTIONS (17)
  - Fatigue [Unknown]
  - Hypoalbuminaemia [Unknown]
  - Thrombocytopenia [Unknown]
  - Anaemia [Unknown]
  - Skin toxicity [Unknown]
  - Proteinuria [Unknown]
  - Decreased appetite [Unknown]
  - Hypothyroidism [Unknown]
  - Abdominal pain [Unknown]
  - Dysgeusia [Unknown]
  - Diarrhoea [Unknown]
  - Nausea [Unknown]
  - Vomiting [Unknown]
  - Stomatitis [Unknown]
  - Aspartate aminotransferase increased [Unknown]
  - Alanine aminotransferase increased [Unknown]
  - Gamma-glutamyltransferase increased [Unknown]
